APPROVED DRUG PRODUCT: ZOLOFT
Active Ingredient: SERTRALINE HYDROCHLORIDE
Strength: EQ 20MG BASE/ML
Dosage Form/Route: CONCENTRATE;ORAL
Application: N020990 | Product #001 | TE Code: AA
Applicant: VIATRIS SPECIALTY LLC
Approved: Dec 7, 1999 | RLD: Yes | RS: Yes | Type: RX